FAERS Safety Report 6462109-0 (Version None)
Quarter: 2009Q4

REPORT INFORMATION
  Report Type: 
  Country: None (occurrence: None)
  Receive Date: 20091130
  Receipt Date: 20091120
  Transmission Date: 20100525
  Serious: Yes (Death)
  Sender: FDA-Public Use
  Company Number: GXKR2009US12674

PATIENT
  Age: 61 Year
  Sex: Male

DRUGS (3)
  1. FLUOROURACIL [Suspect]
     Indication: COLORECTAL CANCER
     Dosage: UNK
     Route: 065
     Dates: start: 20080701
  2. FOLINIC ACID (NGX) [Suspect]
     Indication: COLORECTAL CANCER
     Dosage: UNK
     Route: 065
     Dates: start: 20080701
  3. OXALIPLATIN [Suspect]
     Indication: COLORECTAL CANCER
     Dosage: UNK
     Route: 065
     Dates: start: 20080701

REACTIONS (14)
  - ACUTE MYOCARDIAL INFARCTION [None]
  - BRONCHOPNEUMONIA [None]
  - CARDIAC ARREST [None]
  - DIFFUSE ALVEOLAR DAMAGE [None]
  - DYSPNOEA [None]
  - DYSPNOEA EXERTIONAL [None]
  - LEUKOCYTOSIS [None]
  - MECHANICAL VENTILATION [None]
  - NEUTROPENIA [None]
  - PLEURAL EFFUSION [None]
  - PULMONARY FIBROSIS [None]
  - RESPIRATORY DISTRESS [None]
  - RESPIRATORY FAILURE [None]
  - RESUSCITATION [None]
